FAERS Safety Report 11733108 (Version 19)
Quarter: 2017Q2

REPORT INFORMATION
  Report Type: Spontaneous
  Country: US (occurrence: US)
  Receive Date: 20151113
  Receipt Date: 20170516
  Transmission Date: 20170829
  Serious: Yes (Other)
  Sender: FDA-Public Use
  Company Number: PHEH2015US023442

PATIENT
  Sex: Female
  Weight: 102.95 kg

DRUGS (8)
  1. ONDANSETRON AUROBINDO [Suspect]
     Active Substance: ONDANSETRON HYDROCHLORIDE
     Indication: VOMITING IN PREGNANCY
     Dosage: 4 MG, 1 TO 2 TIMES A DAY
     Route: 065
     Dates: start: 20140307, end: 20140319
  2. ONDANSETRON AUROBINDO [Suspect]
     Active Substance: ONDANSETRON HYDROCHLORIDE
     Dosage: 4 MG,  1 TO 2 TIMES A DAY
     Route: 065
     Dates: start: 20140504, end: 20140516
  3. ONDANSETRONE RANBAXY [Suspect]
     Active Substance: ONDANSETRON HYDROCHLORIDE
     Indication: VOMITING IN PREGNANCY
     Dosage: 4 MG,  1 TO 2 TIMES A DAY
     Route: 065
     Dates: start: 20140806, end: 20140818
  4. ZOFRAN [Suspect]
     Active Substance: ONDANSETRON HYDROCHLORIDE
     Indication: VOMITING IN PREGNANCY
     Dosage: UNK
     Route: 048
  5. ONDANSETRON [Suspect]
     Active Substance: ONDANSETRON
     Indication: VOMITING IN PREGNANCY
     Dosage: 4 MG,  1 TO 2 TIMES A DAY
     Route: 065
     Dates: start: 20140911, end: 20140923
  6. ONDANSETRON [Suspect]
     Active Substance: ONDANSETRON
     Indication: VOMITING IN PREGNANCY
     Dosage: 4 MG, 1 TO 2 TIMES A DAY
     Route: 065
     Dates: start: 20140323, end: 20140407
  7. ONDANSETRON AUROBINDO [Suspect]
     Active Substance: ONDANSETRON HYDROCHLORIDE
     Dosage: 4 MG,  1 TO 2 TIMES A DAY
     Route: 065
     Dates: start: 20140607, end: 20140619
  8. ONDANSETRON DR REDDY [Suspect]
     Active Substance: ONDANSETRON
     Indication: VOMITING IN PREGNANCY
     Dosage: 4 MG, 1 TO 2 TIMES A DAY
     Route: 065
     Dates: start: 20140406, end: 20140418

REACTIONS (13)
  - Maternal exposure during pregnancy [Unknown]
  - Injury [Unknown]
  - Pain [Unknown]
  - Anxiety [Unknown]
  - Product use in unapproved indication [Unknown]
  - Oligohydramnios [Unknown]
  - Back injury [Unknown]
  - Overweight [Unknown]
  - Gestational diabetes [Unknown]
  - Anhedonia [Unknown]
  - Emotional distress [Unknown]
  - Uterine contractions during pregnancy [Unknown]
  - Intervertebral disc degeneration [Unknown]
